FAERS Safety Report 9918947 (Version 2)
Quarter: 2014Q1

REPORT INFORMATION
  Report Type: Spontaneous
  Country: US (occurrence: US)
  Receive Date: 20140224
  Receipt Date: 20140224
  Transmission Date: 20141002
  Serious: Yes (Other)
  Sender: FDA-Public Use
  Company Number: US-GE HEALTHCARE MEDICAL DIAGNOSTICS-OSCN-PR-0910S-0440

PATIENT
  Age: 71 Year
  Sex: Female

DRUGS (8)
  1. OMNISCAN [Suspect]
     Indication: RENAL MASS
     Dates: start: 20021009, end: 20021009
  2. OMNISCAN [Suspect]
     Indication: RENAL ARTERY STENOSIS
     Dates: start: 20021102, end: 20021102
  3. OMNISCAN [Suspect]
     Indication: PRODUCT USED FOR UNKNOWN INDICATION
     Dates: start: 20021220, end: 20021220
  4. VISIPAQUE [Suspect]
     Dates: start: 20021220
  5. MAGNEVIST [Suspect]
     Indication: RENAL MASS
     Dates: start: 20030513, end: 20030513
  6. MAGNEVIST [Suspect]
     Indication: RENAL MASS
     Dates: start: 20040427, end: 20040427
  7. MAGNEVIST [Suspect]
     Indication: RENAL MASS
     Dates: start: 20041019, end: 20041019
  8. MAGNEVIST [Suspect]
     Indication: RENAL ATROPHY
     Dates: start: 20060418, end: 20060418

REACTIONS (1)
  - Nephrogenic systemic fibrosis [Not Recovered/Not Resolved]
